FAERS Safety Report 4731068-0 (Version None)
Quarter: 2005Q3

REPORT INFORMATION
  Report Type: 
  Country: None (occurrence: None)
  Receive Date: 20050726
  Receipt Date: 20050302
  Transmission Date: 20060218
  Serious: Yes (Hospitalization)
  Sender: FDA-Public Use
  Company Number: 05FRA0092

PATIENT
  Age: 63 Year
  Sex: Male

DRUGS (4)
  1. AGGRASTAT [Suspect]
     Dosage: 32 ML/H, 30 MINUTES; 9 ML/H
     Dates: start: 20050207, end: 20050207
  2. NADROPARIN CALCIUM (NADROPARIN CALCIUM) [Concomitant]
  3. ACETAMINOPHEN/PROPOXYPHENE HYDROCHLORIDE (APOREX) [Concomitant]
  4. CLOPIDOGREL BISULFATE [Concomitant]

REACTIONS (1)
  - THROMBOCYTOPENIA [None]
